FAERS Safety Report 4698200-9 (Version None)
Quarter: 2005Q2

REPORT INFORMATION
  Report Type: 
  Country: None (occurrence: None)
  Receive Date: 20050623
  Receipt Date: 20050615
  Transmission Date: 20051028
  Serious: Yes (Other)
  Sender: FDA-Public Use
  Company Number: US-JNJFOC-20050604639

PATIENT
  Sex: Male
  Weight: 24.49 kg

DRUGS (1)
  1. CONCERTA [Suspect]
     Indication: ATTENTION DEFICIT/HYPERACTIVITY DISORDER
     Route: 049

REACTIONS (5)
  - ABNORMAL BEHAVIOUR [None]
  - AFFECT LABILITY [None]
  - ANOREXIA [None]
  - PAIN IN EXTREMITY [None]
  - WEIGHT GAIN POOR [None]
